FAERS Safety Report 9648695 (Version 1)
Quarter: 2013Q4

REPORT INFORMATION
  Report Type: Spontaneous
  Country: US (occurrence: US)
  Receive Date: 20131028
  Receipt Date: 20131028
  Transmission Date: 20140711
  Serious: No
  Sender: FDA-Public Use
  Company Number: US-MYLANLABS-2013S1007054

PATIENT
  Age: 13 Year
  Sex: Male
  Weight: 43.09 kg

DRUGS (3)
  1. RISPERIDONE [Suspect]
     Dates: start: 20130323, end: 20130325
  2. VYVANSE [Concomitant]
  3. PROZAC [Concomitant]

REACTIONS (1)
  - Epistaxis [Recovered/Resolved]
